FAERS Safety Report 16476528 (Version 2)
Quarter: 2019Q3

REPORT INFORMATION
  Report Type: Spontaneous
  Country: JP (occurrence: JP)
  Receive Date: 20190626
  Receipt Date: 20190702
  Transmission Date: 20191004
  Serious: No
  Sender: FDA-Public Use
  Company Number: JP-BEH-2019103416

PATIENT
  Age: 71 Year
  Sex: Male

DRUGS (2)
  1. ALBUMINAR-5 [Suspect]
     Active Substance: ALBUMIN HUMAN
     Indication: HYPOTENSION
     Dosage: 12.5G/250 MILLILITER, TOT
     Route: 065
     Dates: start: 20190529, end: 20190529
  2. RED BLOOD CELLS [Concomitant]
     Active Substance: HUMAN RED BLOOD CELL
     Dosage: UNK
     Dates: start: 20190529, end: 20190529

REACTIONS (1)
  - Generalised erythema [Unknown]

NARRATIVE: CASE EVENT DATE: 20190529
